FAERS Safety Report 10180501 (Version 1)
Quarter: 2014Q2

REPORT INFORMATION
  Report Type: Spontaneous
  Country: US (occurrence: None)
  Receive Date: 20140425
  Receipt Date: 20140425
  Transmission Date: 20141212
  Serious: No
  Sender: FDA-Public Use
  Company Number: AP356-00403-SPO-US

PATIENT
  Age: 62 Year
  Sex: Female
  Weight: 88 kg

DRUGS (5)
  1. BELVIQ (LORCASERIN HYDROCHLORIDE) [Suspect]
     Indication: WEIGHT DECREASED
     Route: 048
     Dates: start: 20140102
  2. TOVIAZ (FESOTERODINE FUMARATE) [Concomitant]
  3. TRAMADOL (TRAMADOL) [Concomitant]
  4. SYNTHROID (LEVOTHYROXINE SODIUM) [Concomitant]
  5. SYMBICORT (BUDESONIDE W/FORMOTEROL FUMATRATE) [Concomitant]

REACTIONS (1)
  - Pruritus generalised [None]
